FAERS Safety Report 23472435 (Version 4)
Quarter: 2025Q1

REPORT INFORMATION
  Report Type: Spontaneous
  Country: US (occurrence: US)
  Receive Date: 20240202
  Receipt Date: 20250109
  Transmission Date: 20250409
  Serious: Yes (Other)
  Sender: PFIZER
  Company Number: US-PFIZER INC-202300097135

PATIENT
  Age: 74 Year
  Sex: Female
  Weight: 58.957 kg

DRUGS (3)
  1. IBRANCE [Suspect]
     Active Substance: PALBOCICLIB
     Indication: Metastatic neoplasm
     Route: 048
     Dates: start: 201910
  2. IBRANCE [Suspect]
     Active Substance: PALBOCICLIB
     Indication: Breast cancer female
     Route: 048
  3. FASLODEX [Concomitant]
     Active Substance: FULVESTRANT
     Dates: start: 201912

REACTIONS (4)
  - Neutropenia [Unknown]
  - Inappropriate schedule of product administration [Unknown]
  - Dysphonia [Recovered/Resolved]
  - Speech disorder [Recovered/Resolved]
